FAERS Safety Report 10428443 (Version 1)
Quarter: 2014Q3

REPORT INFORMATION
  Report Type: Spontaneous
  Country: ZA (occurrence: ZA)
  Receive Date: 20140903
  Receipt Date: 20140903
  Transmission Date: 20150326
  Serious: Yes (Other)
  Sender: FDA-Public Use
  Company Number: ZA-VIIV HEALTHCARE LIMITED-B1029321A

PATIENT

DRUGS (3)
  1. TENOFOVIR [Suspect]
     Active Substance: TENOFOVIR
     Indication: HIV INFECTION
     Route: 064
  2. EFAVIRENZ [Suspect]
     Active Substance: EFAVIRENZ
     Indication: HIV INFECTION
     Route: 064
  3. LAMIVUDINE-HIV [Suspect]
     Active Substance: LAMIVUDINE
     Indication: HIV INFECTION
     Route: 064

REACTIONS (5)
  - Lower respiratory tract infection [Unknown]
  - HIV infection [Unknown]
  - Foetal exposure during pregnancy [Unknown]
  - Empyema [Unknown]
  - Exposure during breast feeding [Unknown]
